FAERS Safety Report 6963316-0 (Version None)
Quarter: 2010Q3

REPORT INFORMATION
  Report Type: 
  Country: None (occurrence: None)
  Receive Date: 20100902
  Receipt Date: 20100827
  Transmission Date: 20110219
  Serious: Yes (Hospitalization)
  Sender: FDA-Public Use
  Company Number: CA-ABBOTT-10P-028-0667305-00

PATIENT
  Age: 42 Year
  Sex: Female

DRUGS (8)
  1. LOPINAVIR/RITONAVIR [Suspect]
     Indication: HIV INFECTION
     Dates: start: 19920101
  2. TENOFOVIR [Interacting]
     Indication: HIV INFECTION
     Dates: start: 19920101
  3. EMTRICITABINE [Interacting]
     Indication: HIV INFECTION
     Dates: start: 19920101
  4. VINBLASTINE SULFATE [Interacting]
     Indication: HODGKIN'S DISEASE
     Dates: start: 20070101
  5. TRIMETHOPRIM [Concomitant]
     Indication: ANTIFUNGAL PROPHYLAXIS
     Dates: start: 20070101
  6. DOXORUBICIN HCL [Concomitant]
     Indication: HODGKIN'S DISEASE
     Dates: start: 20070101
  7. BLEOMYCIN SULFATE [Concomitant]
     Indication: HODGKIN'S DISEASE
     Dates: start: 20070101
  8. DACARBAZINE [Concomitant]
     Indication: HODGKIN'S DISEASE
     Dates: start: 20070101

REACTIONS (2)
  - DRUG INTERACTION [None]
  - NEUROTOXICITY [None]
